FAERS Safety Report 4889211-9 (Version None)
Quarter: 2006Q1

REPORT INFORMATION
  Report Type: 
  Country: None (occurrence: None)
  Receive Date: 20060120
  Receipt Date: 20060120
  Transmission Date: 20060701
  Serious: Yes (Death)
  Sender: FDA-Public Use
  Company Number: None

PATIENT
  Age: 58 Year
  Sex: Male
  Weight: 84 kg

DRUGS (8)
  1. XIGRIS [Suspect]
     Indication: SEPSIS
     Dosage: 24 MCG/CG/HR X 96
     Dates: start: 20050228, end: 20050301
  2. ZITHROMAX [Concomitant]
  3. ROCEPHIN [Concomitant]
  4. DOPAMINE [Concomitant]
  5. DOBUTAMINE HCL [Concomitant]
  6. NOVEPIN [Concomitant]
  7. PLATELETS [Concomitant]
  8. VANCO [Concomitant]

REACTIONS (2)
  - CONDITION AGGRAVATED [None]
  - PULMONARY ALVEOLAR HAEMORRHAGE [None]
